FAERS Safety Report 23576560 (Version 1)
Quarter: 2024Q1

REPORT INFORMATION
  Report Type: Spontaneous
  Country: US (occurrence: None)
  Receive Date: 20240228
  Receipt Date: 20240228
  Transmission Date: 20240409
  Serious: Yes (Other)
  Sender: FDA-Public Use
  Company Number: None

PATIENT
  Age: 37 Year

DRUGS (1)
  1. PAXLOVID [Suspect]
     Active Substance: NIRMATRELVIR\RITONAVIR
     Indication: COVID-19
     Dates: start: 20240201, end: 20240206

REACTIONS (5)
  - Diarrhoea [None]
  - Gastrooesophageal reflux disease [None]
  - Back pain [None]
  - Anorectal discomfort [None]
  - Disease recurrence [None]

NARRATIVE: CASE EVENT DATE: 20240201
